FAERS Safety Report 7808435-1 (Version None)
Quarter: 2011Q4

REPORT INFORMATION
  Report Type: 
  Country: None (occurrence: None)
  Receive Date: 20111012
  Receipt Date: 20111003
  Transmission Date: 20120403
  Serious: Yes (Other)
  Sender: FDA-Public Use
  Company Number: CA-JNJFOC-20111001358

PATIENT
  Sex: Female
  Weight: 72 kg

DRUGS (8)
  1. EFFEXOR [Concomitant]
     Dosage: BEFORE NOON
     Route: 065
  2. EFFEXOR [Concomitant]
     Dosage: HOUR OF SLEEP
     Route: 065
  3. ATACAND [Concomitant]
     Route: 065
  4. REMICADE [Suspect]
     Indication: ANKYLOSING SPONDYLITIS
     Route: 042
     Dates: start: 20081126
  5. RABEPRAZOLE SODIUM [Concomitant]
     Route: 065
  6. AMITRIPTYLINE HCL [Concomitant]
     Dosage: HOUR OF SLEEP
     Route: 065
  7. ARTHROTEC [Concomitant]
     Route: 065
  8. ELAVIL [Concomitant]
     Dosage: HOUR OF SLEEP
     Route: 065

REACTIONS (1)
  - DIVERTICULITIS [None]
